FAERS Safety Report 17106094 (Version 1)
Quarter: 2019Q4

REPORT INFORMATION
  Report Type: Spontaneous
  Country: CN (occurrence: CN)
  Receive Date: 20191203
  Receipt Date: 20191203
  Transmission Date: 20200122
  Serious: Yes (Hospitalization)
  Sender: FDA-Public Use
  Company Number: CN-BAXTER-2019BAX024238

PATIENT
  Age: 49 Year
  Sex: Female
  Weight: 53.5 kg

DRUGS (14)
  1. DOXORUBICIN HYDROCHLORIDE. [Suspect]
     Active Substance: DOXORUBICIN HYDROCHLORIDE
     Dosage: DOSE RE-INTRODUCED DOXORUBICIN HYDROCHLORIDE + STERILE WATER
     Route: 041
  2. 0.9% SODIUM CHLORIDE INJECTION [Suspect]
     Active Substance: SODIUM CHLORIDE
     Dosage: SECOND CYCLE OF AC CHEMOTHERAPY REGIMEN CYCLOPHOSPHAMIDE 0.94 G + SODIUM CHLORIDE
     Route: 041
     Dates: start: 20191113, end: 20191113
  3. DOXORUBICIN HYDROCHLORIDE. [Suspect]
     Active Substance: DOXORUBICIN HYDROCHLORIDE
     Dosage: SECOND CYCLE OF AC CHEMOTHERAPY REGIMEN DOXORUBICIN HYDROCHLORIDE + STERILE WATER (500ML)
     Route: 041
     Dates: start: 20191113, end: 20191113
  4. MESNA. [Suspect]
     Active Substance: MESNA
     Indication: PROPHYLAXIS
     Dosage: AT 0, 4 AND 8 HOURS
     Route: 041
     Dates: start: 20191113, end: 20191113
  5. ENDOXAN [Suspect]
     Active Substance: CYCLOPHOSPHAMIDE
     Indication: BREAST CANCER FEMALE
     Dosage: FIRST CYCLE OF AC CHEMOTHERAPY REGIMEN CYCLOPHOSPHAMIDE (0.94G) + 0.9% SODIUM CHLORIDE (NS)
     Route: 041
  6. ENDOXAN [Suspect]
     Active Substance: CYCLOPHOSPHAMIDE
     Dosage: DOSE RE-INTRODUCED, CYCLOPHOSPHAMIDE + 0.9% SODIUM CHLORIDE
     Route: 041
  7. DOXORUBICIN HYDROCHLORIDE. [Suspect]
     Active Substance: DOXORUBICIN HYDROCHLORIDE
     Indication: BREAST CANCER FEMALE
     Dosage: FIRST CYCLE OF AC CHEMOTHERAPY REGIMEN DOXORUBICIN HYDROCHLORIDE (94MG) + STERILE WATER
     Route: 041
  8. STERILE WATER [Suspect]
     Active Substance: WATER
     Indication: MEDICATION DILUTION
     Dosage: FIRST CYCLE OF AC CHEMOTHERAPY REGIMEN DOXORUBICIN HYDROCHLORIDE (94MG) + STERILE WATER
     Route: 041
  9. 0.9% SODIUM CHLORIDE INJECTION [Suspect]
     Active Substance: SODIUM CHLORIDE
     Dosage: DOSE RE-INTRODUCED CYCLOPHOSPHAMIDE+ 0.9% SODIUM CHLORIDE (NS)
     Route: 041
  10. 0.9% SODIUM CHLORIDE INJECTION [Suspect]
     Active Substance: SODIUM CHLORIDE
     Indication: MEDICATION DILUTION
     Dosage: FIRST CYCLE OF AC CHEMOTHERAPY REGIMEN CYCLOPHOSPHAMIDE+ 0.9% SODIUM CHLORIDE (NS)
     Route: 041
  11. STERILE WATER [Suspect]
     Active Substance: WATER
     Dosage: DOSE RE-INTRODUCED, DOXORUBICIN HYDROCHLORIDE + STERILE WATER
     Route: 041
  12. MESNA. [Suspect]
     Active Substance: MESNA
     Dosage: DOSE RE-INTRODUCED
     Route: 041
  13. STERILE WATER [Suspect]
     Active Substance: WATER
     Dosage: SECOND CYCLE OF AC CHEMOTHERAPY REGIMEN DOXORUBICIN HYDROCHLORIDE (94MG) + STERILE WATER (500 ML)
     Route: 041
     Dates: start: 20191113, end: 20191113
  14. ENDOXAN [Suspect]
     Active Substance: CYCLOPHOSPHAMIDE
     Dosage: SECOND CYCLE OF AC CHEMOTHERAPY REGIMEN CYCLOPHOSPHAMIDE+ 0.9% SODIUM CHLORIDE 100ML
     Route: 041
     Dates: start: 20191113, end: 20191113

REACTIONS (2)
  - Haematuria [Unknown]
  - Proteinuria [Unknown]

NARRATIVE: CASE EVENT DATE: 20191030
